FAERS Safety Report 17375153 (Version 1)
Quarter: 2020Q1

REPORT INFORMATION
  Report Type: Spontaneous
  Country: US (occurrence: US)
  Receive Date: 20200204
  Receipt Date: 20200204
  Transmission Date: 20200409
  Serious: Yes (Death)
  Sender: FDA-Public Use
  Company Number: None

PATIENT
  Age: 59 Year
  Sex: Male
  Weight: 55.8 kg

DRUGS (1)
  1. TECENTRIQ [Suspect]
     Active Substance: ATEZOLIZUMAB
     Indication: LUNG NEOPLASM MALIGNANT
     Dosage: ?          OTHER FREQUENCY:ONE TIME;?
     Route: 042
     Dates: start: 20191018, end: 20191018

REACTIONS (7)
  - Pneumonia [None]
  - Hypoxia [None]
  - Pulmonary embolism [None]
  - Dyspnoea [None]
  - Pneumonitis [None]
  - Respiratory failure [None]
  - Acute respiratory distress syndrome [None]

NARRATIVE: CASE EVENT DATE: 20191018
